FAERS Safety Report 9636113 (Version 2)
Quarter: 2014Q1

REPORT INFORMATION
  Report Type: Spontaneous
  Country: AU (occurrence: None)
  Receive Date: 20131017
  Receipt Date: 20140113
  Transmission Date: 20141002
  Serious: Yes (Death, Other)
  Sender: FDA-Public Use
  Company Number: CO-OR-AU-2013-142

PATIENT
  Sex: 0

DRUGS (2)
  1. PREDNISOLONE [Suspect]
     Indication: PYODERMA GANGRENOSUM
     Route: 048
  2. MYCOPHENOLATE MOFETIL [Suspect]
     Indication: PYODERMA GANGRENOSUM

REACTIONS (1)
  - Large intestine perforation [None]
